FAERS Safety Report 5524567-5 (Version None)
Quarter: 2007Q4

REPORT INFORMATION
  Report Type: 
  Country: None (occurrence: None)
  Receive Date: 20071123
  Receipt Date: 20071113
  Transmission Date: 20080405
  Serious: Yes (Other)
  Sender: FDA-Public Use
  Company Number: US-JNJFOC-20071105240

PATIENT
  Age: 69 Year
  Sex: Female

DRUGS (3)
  1. LEVAQUIN [Suspect]
     Indication: SINUSITIS
     Route: 048
  2. ALLEGRA [Concomitant]
     Indication: MULTIPLE ALLERGIES
     Route: 065
  3. FLONASE [Concomitant]
     Indication: MULTIPLE ALLERGIES
     Route: 065

REACTIONS (3)
  - ARTHRALGIA [None]
  - HYPOAESTHESIA [None]
  - OEDEMA PERIPHERAL [None]
